FAERS Safety Report 12890767 (Version 1)
Quarter: 2016Q4

REPORT INFORMATION
  Report Type: Spontaneous
  Country: US (occurrence: US)
  Receive Date: 20161025
  Receipt Date: 20161025
  Transmission Date: 20170207
  Serious: No
  Sender: FDA-Public Use
  Company Number: None

PATIENT
  Age: 59 Year
  Sex: Female

DRUGS (1)
  1. ZOLINZA [Suspect]
     Active Substance: VORINOSTAT
     Indication: OVARIAN CANCER

REACTIONS (7)
  - Fatigue [None]
  - Abdominal pain [None]
  - Diarrhoea [None]
  - Constipation [None]
  - Nausea [None]
  - Vomiting [None]
  - Decreased appetite [None]

NARRATIVE: CASE EVENT DATE: 20161025
